FAERS Safety Report 7626115 (Version 3)
Quarter: 2013Q4

REPORT INFORMATION
  Report Type: Spontaneous
  Country: JP (occurrence: JP)
  Receive Date: 20101013
  Receipt Date: 20131014
  Transmission Date: 20140711
  Serious: Yes (Hospitalization)
  Sender: FDA-Public Use
  Company Number: JP-BAYER-201014918BYL

PATIENT
  Age: 46 Year
  Sex: Male
  Weight: 70.1 kg

DRUGS (5)
  1. BETAFERON [Suspect]
     Indication: MULTIPLE SCLEROSIS
     Dosage: 9.6 MIU, QOD
     Route: 058
     Dates: start: 20100805, end: 20100918
  2. CLARITHROMYCIN [Suspect]
     Indication: SINUSITIS
     Dosage: 400 MG (DAILY DOSE), , ORAL
     Route: 048
     Dates: start: 201008, end: 20100919
  3. MUCODYNE [Suspect]
     Indication: SINUSITIS
     Dosage: 1500 MG (DAILY DOSE), , ORAL
     Route: 048
     Dates: start: 201008, end: 20100919
  4. ZOLOFT [Concomitant]
     Indication: DEPRESSION
     Dosage: 50 MG (DAILY DOSE), , ORAL
     Route: 048
     Dates: start: 201006, end: 20101003
  5. MYSLEE [Concomitant]
     Indication: INSOMNIA
     Dosage: 5 MG (DAILY DOSE), , ORAL
     Route: 048
     Dates: start: 201004

REACTIONS (2)
  - Drug-induced liver injury [Recovered/Resolved]
  - Autoimmune hepatitis [Recovered/Resolved]
